FAERS Safety Report 7167916-7 (Version None)
Quarter: 2010Q4

REPORT INFORMATION
  Report Type: 
  Country: None (occurrence: None)
  Receive Date: 20101216
  Receipt Date: 20101208
  Transmission Date: 20110411
  Serious: Yes (Hospitalization, Other)
  Sender: FDA-Public Use
  Company Number: BR-PFIZER INC-2010118829

PATIENT
  Age: 57 Year
  Sex: Female
  Weight: 74 kg

DRUGS (5)
  1. CHAMPIX [Suspect]
     Indication: TOBACCO USER
     Dosage: 1 MG, 2X/DAY, EVERY 12 HOURS
     Route: 048
     Dates: start: 20100901, end: 20100101
  2. SERTRALINE [Concomitant]
     Indication: ANXIETY
     Dosage: UNK
     Dates: start: 20100701
  3. CLONAZEPAM [Concomitant]
     Indication: INSOMNIA
     Dosage: 2 MG, UNK
  4. PURAN T4 [Concomitant]
     Indication: THYROID DISORDER
     Dosage: 1 TABLET IN THE MORNING
  5. SIMVASTATIN [Concomitant]
     Indication: BLOOD CHOLESTEROL INCREASED
     Dosage: UNK

REACTIONS (5)
  - ANXIETY [None]
  - DIARRHOEA [None]
  - DRUG DISPENSING ERROR [None]
  - ENTERITIS INFECTIOUS [None]
  - EXPIRED DRUG ADMINISTERED [None]
